FAERS Safety Report 12921999 (Version 1)
Quarter: 2016Q4

REPORT INFORMATION
  Report Type: Spontaneous
  Country: US (occurrence: US)
  Receive Date: 20161108
  Receipt Date: 20161108
  Transmission Date: 20170207
  Serious: No
  Sender: FDA-Public Use
  Company Number: US-ELI_LILLY_AND_COMPANY-US201610008223

PATIENT
  Sex: Male

DRUGS (2)
  1. HUMATROPE [Suspect]
     Active Substance: SOMATROPIN
     Dosage: 1.4 MG, UNKNOWN
     Route: 065
     Dates: start: 20161017
  2. HUMATROPE [Suspect]
     Active Substance: SOMATROPIN
     Indication: BODY HEIGHT BELOW NORMAL
     Dosage: 1.2 MG, UNKNOWN
     Route: 065
     Dates: start: 20161008

REACTIONS (4)
  - Underdose [Unknown]
  - Accidental exposure to product by child [Unknown]
  - Injection site pain [Unknown]
  - Injection site haemorrhage [Unknown]
